FAERS Safety Report 8811323 (Version 1)
Quarter: 2012Q4

REPORT INFORMATION
  Report Type: 
  Country: DK (occurrence: IT)
  Receive Date: 20120927
  Receipt Date: 20120927
  Transmission Date: 20130627
  Serious: Yes (Other)
  Sender: FDA-Public Use
  Company Number: IT-FRI-1000004970

PATIENT
  Age: 34 Year
  Sex: Male

DRUGS (2)
  1. CITALOPRAM [Suspect]
     Indication: DEPRESSION
     Dosage: 20 mg
  2. TOPIRAMATE [Suspect]
     Indication: MIGRAINE PROPHYLAXIS
     Dosage: May increase by 25 Q 15days upto 100mg/day

REACTIONS (3)
  - Glaucoma [Recovered/Resolved]
  - Intraocular pressure increased [Recovered/Resolved]
  - Myopia [Recovered/Resolved]
